FAERS Safety Report 22331219 (Version 1)
Quarter: 2023Q2

REPORT INFORMATION
  Report Type: Spontaneous
  Country: CA (occurrence: CA)
  Receive Date: 20230517
  Receipt Date: 20230517
  Transmission Date: 20230721
  Serious: Yes (Other)
  Sender: FDA-Public Use
  Company Number: None

PATIENT
  Sex: Female

DRUGS (6)
  1. HYDROXYCHLOROQUINE SULFATE [Suspect]
     Active Substance: HYDROXYCHLOROQUINE SULFATE
     Indication: Product used for unknown indication
     Route: 065
  2. MYCOPHENOLATE MOFETIL [Suspect]
     Active Substance: MYCOPHENOLATE MOFETIL
     Indication: Product used for unknown indication
  3. RITUXIMAB [Suspect]
     Active Substance: RITUXIMAB
     Indication: Systemic lupus erythematosus
     Dosage: INTRAVENOUS DRIP, 1 EVERY 15 DAYS, THERAPY DURATION : -149.0
     Route: 042
  4. IRBESARTAN [Concomitant]
     Active Substance: IRBESARTAN
  5. WARFARIN [Concomitant]
     Active Substance: WARFARIN
  6. RITUXIMAB [Suspect]
     Active Substance: RITUXIMAB
     Indication: Systemic lupus erythematosus
     Dosage: INTRAVENOUS DRIP, 1 EVERY 15 DAYS,
     Route: 042

REACTIONS (3)
  - Drug ineffective [Unknown]
  - Proteinuria [Unknown]
  - Somnolence [Unknown]
